FAERS Safety Report 19269196 (Version 1)
Quarter: 2021Q2

REPORT INFORMATION
  Report Type: Spontaneous
  Country: IN (occurrence: IN)
  Receive Date: 20210517
  Receipt Date: 20210517
  Transmission Date: 20210717
  Serious: Yes (Death)
  Sender: FDA-Public Use
  Company Number: IN-PFIZER INC-2019094958

PATIENT
  Age: 56 Year
  Sex: Female

DRUGS (3)
  1. PALBACE [Suspect]
     Active Substance: PALBOCICLIB
     Indication: BREAST CANCER METASTATIC
     Dosage: 125 MG, 1X/DAY
     Route: 048
     Dates: start: 20180628, end: 20210204
  2. PALBACE [Suspect]
     Active Substance: PALBOCICLIB
     Dosage: 125 MG, 1X/DAY
     Route: 048
     Dates: start: 20180728
  3. PALBACE [Suspect]
     Active Substance: PALBOCICLIB
     Dosage: 100 MG, 1X/DAY, 3 WEEKS ON AND 1 OFF

REACTIONS (2)
  - Death [Fatal]
  - Skin discolouration [Unknown]

NARRATIVE: CASE EVENT DATE: 20210204
